FAERS Safety Report 12072683 (Version 3)
Quarter: 2016Q1

REPORT INFORMATION
  Report Type: Spontaneous
  Country: JP (occurrence: JP)
  Receive Date: 20160212
  Receipt Date: 20160218
  Transmission Date: 20160526
  Serious: Yes (Death, Life-Threatening, Other)
  Sender: FDA-Public Use
  Company Number: JP-PFIZER INC-2016008468

PATIENT
  Age: 61 Year
  Sex: Male
  Weight: 65.8 kg

DRUGS (15)
  1. LANSOPRAZOLE. [Concomitant]
     Active Substance: LANSOPRAZOLE
     Dosage: 1 TABLET, UNK
     Route: 048
  2. BAYASPIRIN [Concomitant]
     Active Substance: ASPIRIN
     Dosage: 1 TABLET, UNK
     Route: 048
  3. KEPPRA [Concomitant]
     Active Substance: LEVETIRACETAM
     Dosage: 2 TABLETS, UNK
  4. FOSPHENYTOIN SODIUM. [Suspect]
     Active Substance: FOSPHENYTOIN SODIUM
     Dosage: 750 MG (750 MG VIAL X TWICE DAILY)
     Route: 042
     Dates: start: 20160110, end: 20160112
  5. NOVORAPID [Concomitant]
     Active Substance: INSULIN ASPART
     Dosage: 11 UNITS
     Route: 058
  6. FOSPHENYTOIN SODIUM. [Suspect]
     Active Substance: FOSPHENYTOIN SODIUM
     Indication: EPILEPSY
     Dosage: 1500 MG (750 MG VIAL X TWICE DAILY)
     Route: 042
     Dates: start: 20160106, end: 20160106
  7. FOSPHENYTOIN SODIUM. [Suspect]
     Active Substance: FOSPHENYTOIN SODIUM
     Dosage: 325 MG (0.5 VIAL X ONCE DAILY)
     Route: 042
     Dates: start: 20160109, end: 20160109
  8. CERCINE [Suspect]
     Active Substance: DIAZEPAM
     Indication: SEIZURE
     Dosage: 25 MG, 2X/DAY
     Dates: start: 20160106, end: 20160106
  9. CERCINE [Suspect]
     Active Substance: DIAZEPAM
     Dosage: 10 MG, 1/4A TWICE DAILY
     Dates: start: 20160106
  10. CERCINE [Suspect]
     Active Substance: DIAZEPAM
     Dosage: 1 A
     Route: 042
     Dates: start: 20160109
  11. REMITCH [Concomitant]
     Active Substance: NALFURAFINE HYDROCHLORIDE
     Dosage: 1 CAPSULE
     Route: 048
  12. LANTUS [Concomitant]
     Active Substance: INSULIN GLARGINE
     Dosage: 6 UNITS
     Route: 058
  13. CERCINE [Suspect]
     Active Substance: DIAZEPAM
     Dosage: 1 A
     Route: 042
     Dates: start: 20160110, end: 20160112
  14. PLAVIX [Concomitant]
     Active Substance: CLOPIDOGREL BISULFATE
     Dosage: 1 TABLET, UNK
     Route: 048
  15. NICORANDIL [Concomitant]
     Active Substance: NICORANDIL
     Dosage: 3 TABLETS, DAILY
     Route: 048

REACTIONS (3)
  - Metastases to central nervous system [Fatal]
  - Blood pressure decreased [Recovered/Resolved]
  - Bradycardia [Recovered/Resolved]

NARRATIVE: CASE EVENT DATE: 20160106
